FAERS Safety Report 4900872-8 (Version None)
Quarter: 2006Q1

REPORT INFORMATION
  Report Type: 
  Country: None (occurrence: None)
  Receive Date: 20060201
  Receipt Date: 20060123
  Transmission Date: 20060701
  Serious: Yes (Hospitalization)
  Sender: FDA-Public Use
  Company Number: 221469

PATIENT
  Age: 71 Year
  Sex: Male
  Weight: 70 kg

DRUGS (4)
  1. MABTHERA                    (RITUXIMAB) [Suspect]
     Indication: LYMPHOMA
     Dosage: 700 MG, SINGLE, INTRAVENOUS
     Route: 042
     Dates: start: 20041014
  2. RANITIDINE [Suspect]
     Indication: LYMPHOMA
     Dosage: 50 MG, SINGLE, INTRAVENOUS
     Route: 042
     Dates: start: 20041014
  3. ZYRTEC [Suspect]
     Indication: LYMPHOMA
     Dosage: 10 MG, SINGLE, ORAL
     Route: 048
     Dates: start: 20041014
  4. ACETAMINOPHEN [Suspect]
     Indication: LYMPHOMA
     Dosage: 1G, SINGLE, ORAL
     Route: 048
     Dates: start: 20041014

REACTIONS (1)
  - ANAPHYLACTIC REACTION [None]
